FAERS Safety Report 5137611-4 (Version None)
Quarter: 2006Q4

REPORT INFORMATION
  Report Type: 
  Country: None (occurrence: None)
  Receive Date: 20061030
  Receipt Date: 20051202
  Transmission Date: 20070319
  Serious: No
  Sender: FDA-Public Use
  Company Number: US-GLAXOSMITHKLINE-A0584460A

PATIENT
  Sex: Female

DRUGS (2)
  1. ADVAIR HFA [Suspect]
     Indication: CHRONIC OBSTRUCTIVE PULMONARY DISEASE
     Dosage: 1BLS TWICE PER DAY
     Route: 055
     Dates: start: 20050630, end: 20050701
  2. NO CONCURRENT MEDICATION [Concomitant]

REACTIONS (4)
  - ABDOMINAL PAIN [None]
  - ABNORMAL FAECES [None]
  - FOREIGN BODY TRAUMA [None]
  - PHARMACEUTICAL PRODUCT COMPLAINT [None]
